FAERS Safety Report 18239370 (Version 1)
Quarter: 2020Q3

REPORT INFORMATION
  Report Type: Spontaneous
  Country: DE (occurrence: DE)
  Receive Date: 20200907
  Receipt Date: 20200907
  Transmission Date: 20201103
  Serious: Yes (Hospitalization)
  Sender: FDA-Public Use
  Company Number: DE-SAMSUNG BIOEPIS-SB-2020-27753

PATIENT
  Age: 58 Year
  Sex: Male
  Weight: 68 kg

DRUGS (3)
  1. IMRALDI [Suspect]
     Active Substance: ADALIMUMAB
     Route: 065
     Dates: start: 20200316
  2. IMRALDI [Suspect]
     Active Substance: ADALIMUMAB
     Route: 065
     Dates: start: 20200528
  3. IMRALDI [Suspect]
     Active Substance: ADALIMUMAB
     Indication: CROHN^S DISEASE
     Route: 065

REACTIONS (2)
  - Anal fistula [Not Recovered/Not Resolved]
  - Rectal abscess [Recovered/Resolved]

NARRATIVE: CASE EVENT DATE: 20200413
